FAERS Safety Report 5268232-0 (Version None)
Quarter: 2007Q1

REPORT INFORMATION
  Report Type: 
  Country: None (occurrence: None)
  Receive Date: 20070316
  Receipt Date: 20070316
  Transmission Date: 20070707
  Serious: Yes (Death)
  Sender: FDA-Public Use
  Company Number: None

PATIENT
  Age: 62 Year
  Sex: Male
  Weight: 86 kg

DRUGS (5)
  1. ETOPOSIDE [Suspect]
     Indication: SMALL CELL LUNG CANCER STAGE UNSPECIFIED
     Dosage: 158 - 2ND CYCLE  D 1-3 Q 21 DAYS  IV
     Route: 042
     Dates: start: 20070203, end: 20070207
  2. ETOPOSIDE [Suspect]
     Indication: SMALL CELL LUNG CANCER STAGE UNSPECIFIED
     Dosage: 158 - 2ND CYCLE  D 1-3 Q 21 DAYS  IV
     Route: 042
     Dates: start: 20070228, end: 20070302
  3. CISPLATIN [Suspect]
     Indication: SMALL CELL LUNG CANCER STAGE UNSPECIFIED
     Dosage: 158 MG - 2ND CYCLE  D1 Q 21 DAYS  IV
     Route: 042
     Dates: start: 20070205
  4. CISPLATIN [Suspect]
     Indication: SMALL CELL LUNG CANCER STAGE UNSPECIFIED
     Dosage: 158 MG - 2ND CYCLE  D1 Q 21 DAYS  IV
     Route: 042
     Dates: start: 20070228
  5. CISPLATIN [Suspect]

REACTIONS (4)
  - CARDIO-RESPIRATORY ARREST [None]
  - NEUTROPENIA [None]
  - PAIN [None]
  - WEIGHT DECREASED [None]
